FAERS Safety Report 15000784 (Version 1)
Quarter: 2018Q2

REPORT INFORMATION
  Report Type: Spontaneous
  Country: US (occurrence: US)
  Receive Date: 20180523
  Receipt Date: 20180523
  Transmission Date: 20180711
  Serious: No
  Sender: FDA-Public Use
  Company Number: None

PATIENT
  Age: 51 Year
  Sex: Female

DRUGS (1)
  1. MINIVELLE [Suspect]
     Active Substance: ESTRADIOL
     Dosage: 0.0375 MG EVERY 4 DAYS; TRANSDERMAL?
     Route: 062
     Dates: start: 20160412, end: 20180125

REACTIONS (2)
  - Rash [None]
  - Application site rash [None]

NARRATIVE: CASE EVENT DATE: 20180411
